FAERS Safety Report 21962544 (Version 3)
Quarter: 2024Q1

REPORT INFORMATION
  Report Type: Report from Study
  Country: JP (occurrence: JP)
  Receive Date: 20230207
  Receipt Date: 20240213
  Transmission Date: 20240410
  Serious: No
  Sender: FDA-Public Use
  Company Number: JP-ASTELLAS-2022JP002078

PATIENT
  Age: 71 Year
  Sex: Male
  Weight: 52.1 kg

DRUGS (10)
  1. ENFORTUMAB VEDOTIN [Suspect]
     Active Substance: ENFORTUMAB VEDOTIN
     Indication: Transitional cell carcinoma
     Route: 041
     Dates: start: 20220119, end: 20220119
  2. ENFORTUMAB VEDOTIN [Suspect]
     Active Substance: ENFORTUMAB VEDOTIN
     Dosage: 1.0 MG/KG, UNKNOWN FREQ.
     Route: 041
     Dates: start: 20220126, end: 20220126
  3. ENFORTUMAB VEDOTIN [Suspect]
     Active Substance: ENFORTUMAB VEDOTIN
     Dosage: 1.0 MG/KG, UNKNOWN FREQ.
     Route: 041
     Dates: start: 20220302, end: 20220316
  4. ENFORTUMAB VEDOTIN [Suspect]
     Active Substance: ENFORTUMAB VEDOTIN
     Dosage: 1.0 MG/KG, ONCE WEEKLY
     Route: 041
     Dates: start: 20220518, end: 20220518
  5. ENFORTUMAB VEDOTIN [Suspect]
     Active Substance: ENFORTUMAB VEDOTIN
     Dosage: 1.0 MG/KG, UNKNOWN FREQ.
     Route: 041
     Dates: start: 20220608, end: 20220608
  6. ENFORTUMAB VEDOTIN [Suspect]
     Active Substance: ENFORTUMAB VEDOTIN
     Dosage: 0.75 MG/KG, UNKNOWN FREQ.
     Route: 041
     Dates: start: 20220615, end: 20220615
  7. ENFORTUMAB VEDOTIN [Suspect]
     Active Substance: ENFORTUMAB VEDOTIN
     Dosage: 0.75 MG/KG, UNKNOWN FREQ.
     Route: 041
     Dates: start: 20220629, end: 20220629
  8. ENFORTUMAB VEDOTIN [Suspect]
     Active Substance: ENFORTUMAB VEDOTIN
     Dosage: 0.75 MG/KG, UNKNOWN FREQ.
     Route: 041
     Dates: start: 20220824, end: 20221019
  9. ENFORTUMAB VEDOTIN [Suspect]
     Active Substance: ENFORTUMAB VEDOTIN
     Dosage: 0.75 MG/KG, UNKNOWN FREQ.
     Route: 041
     Dates: start: 20221121, end: 20221128
  10. ENFORTUMAB VEDOTIN [Suspect]
     Active Substance: ENFORTUMAB VEDOTIN
     Dosage: 0.75 MG/KG, UNKNOWN FREQ.
     Route: 041
     Dates: start: 20221212, end: 20221219

REACTIONS (2)
  - Skin disorder [Recovered/Resolved]
  - Rash macular [Recovered/Resolved]

NARRATIVE: CASE EVENT DATE: 20220126
